FAERS Safety Report 8243418-1 (Version None)
Quarter: 2012Q1

REPORT INFORMATION
  Report Type: 
  Country: None (occurrence: None)
  Receive Date: 20120329
  Receipt Date: 20120315
  Transmission Date: 20120608
  Serious: Yes (Hospitalization, Other)
  Sender: FDA-Public Use
  Company Number: CA-ROCHE-1049829

PATIENT
  Sex: Male
  Weight: 107.14 kg

DRUGS (14)
  1. FINASTERIDE [Concomitant]
  2. PREDNISONE TAB [Concomitant]
  3. ACTEMRA [Suspect]
     Indication: RHEUMATOID ARTHRITIS
     Route: 042
     Dates: start: 20110516, end: 20120302
  4. AMLODIPINE [Concomitant]
     Indication: HYPERTENSION
  5. FOSAVANCE [Concomitant]
  6. ROBAXACET [Concomitant]
  7. RAMIPRIL [Concomitant]
     Indication: HYPERTENSION
  8. HYDROCHLOROTHIAZIDE [Concomitant]
  9. DAPSONE [Concomitant]
  10. GLIMEPIRIDE [Concomitant]
     Indication: DIABETES MELLITUS
  11. LIPITOR [Concomitant]
  12. VITAMIN D [Concomitant]
  13. FOLIC ACID [Concomitant]
  14. METHOTREXATE [Concomitant]

REACTIONS (4)
  - PULMONARY EMBOLISM [None]
  - HAEMORRHAGE [None]
  - DEEP VEIN THROMBOSIS [None]
  - ATRIAL FIBRILLATION [None]
